FAERS Safety Report 17503155 (Version 1)
Quarter: 2020Q1

REPORT INFORMATION
  Report Type: Spontaneous
  Country: CN (occurrence: CN)
  Receive Date: 20200305
  Receipt Date: 20200305
  Transmission Date: 20200409
  Serious: Yes (Other)
  Sender: FDA-Public Use
  Company Number: CN-BAYER-2020-032409

PATIENT
  Age: 81 Year
  Sex: Female
  Weight: 43 kg

DRUGS (2)
  1. AVELOX [Suspect]
     Active Substance: MOXIFLOXACIN HYDROCHLORIDE
     Indication: BILE DUCT STONE
     Dosage: 0.4 G, QD
     Route: 041
     Dates: start: 20200117, end: 20200120
  2. AVELOX [Suspect]
     Active Substance: MOXIFLOXACIN HYDROCHLORIDE
     Indication: CHOLECYSTITIS

REACTIONS (6)
  - Electrocardiogram QT prolonged [Recovered/Resolved]
  - Product use in unapproved indication [None]
  - Sinus bradycardia [Recovered/Resolved]
  - Off label use [None]
  - Chest discomfort [Recovered/Resolved]
  - Sinus arrhythmia [Recovered/Resolved]

NARRATIVE: CASE EVENT DATE: 20200117
